FAERS Safety Report 10487259 (Version 1)
Quarter: 2014Q4

REPORT INFORMATION
  Report Type: Report from Study
  Country: US (occurrence: US)
  Receive Date: 20141001
  Receipt Date: 20141001
  Transmission Date: 20150528
  Serious: Yes (Other)
  Sender: FDA-Public Use
  Company Number: US-AMGEN INC.-USASP2014074772

PATIENT
  Age: 72 Year
  Sex: Female

DRUGS (1)
  1. ENBREL [Suspect]
     Active Substance: ETANERCEPT
     Indication: RHEUMATOID ARTHRITIS
     Dosage: 25MG, 2 X WEEK AND 3 X WEEK ALTERNATING WEEKS
     Route: 065
     Dates: start: 19990301

REACTIONS (2)
  - Osteoporosis [Unknown]
  - Elbow operation [Unknown]
